FAERS Safety Report 15070346 (Version 1)
Quarter: 2018Q2

REPORT INFORMATION
  Report Type: Spontaneous
  Country: US (occurrence: US)
  Receive Date: 20180626
  Receipt Date: 20180626
  Transmission Date: 20180711
  Serious: No
  Sender: FDA-Public Use
  Company Number: US-AMGEN-USASL2014077943

PATIENT
  Age: 94 Year
  Sex: Female

DRUGS (1)
  1. PROLIA [Suspect]
     Active Substance: DENOSUMAB
     Indication: OSTEOPOROSIS POSTMENOPAUSAL
     Dosage: UNK
     Route: 065

REACTIONS (6)
  - Arthralgia [Unknown]
  - Nausea [Unknown]
  - Acne [Unknown]
  - Rash [Not Recovered/Not Resolved]
  - Groin pain [Unknown]
  - Back pain [Unknown]

NARRATIVE: CASE EVENT DATE: 201409
